FAERS Safety Report 25467689 (Version 1)
Quarter: 2025Q2

REPORT INFORMATION
  Report Type: Spontaneous
  Country: US (occurrence: US)
  Receive Date: 20250623
  Receipt Date: 20250623
  Transmission Date: 20250717
  Serious: No
  Sender: ROCHE
  Company Number: US-ROCHE-10000314145

PATIENT
  Sex: Male

DRUGS (1)
  1. XOLAIR [Suspect]
     Active Substance: OMALIZUMAB
     Indication: Urticaria thermal
     Dosage: DOSE: 300MG/2ML
     Route: 058
     Dates: start: 202503

REACTIONS (2)
  - Urticaria [Recovered/Resolved]
  - Nasopharyngitis [Unknown]
